APPROVED DRUG PRODUCT: DESMOPRESSIN ACETATE
Active Ingredient: DESMOPRESSIN ACETATE
Strength: 0.004MG/ML
Dosage Form/Route: INJECTABLE;INJECTION
Application: A075220 | Product #001
Applicant: HOSPIRA INC
Approved: Aug 28, 2000 | RLD: No | RS: No | Type: DISCN